FAERS Safety Report 24910115 (Version 1)
Quarter: 2025Q1

REPORT INFORMATION
  Report Type: Spontaneous
  Country: US (occurrence: US)
  Receive Date: 20250131
  Receipt Date: 20250131
  Transmission Date: 20250409
  Serious: Yes (Death, Other)
  Sender: AMGEN
  Company Number: US-AMGEN-USASP2025018208

PATIENT
  Age: 45 Year
  Sex: Female

DRUGS (2)
  1. PREDNISONE [Suspect]
     Active Substance: PREDNISONE
     Indication: Immune-mediated enterocolitis
     Dosage: 50 MILLIGRAM, QD
     Route: 065
  2. IPILIMUMAB;NIVOLUMAB [Concomitant]
     Indication: Lung adenocarcinoma

REACTIONS (4)
  - Lung adenocarcinoma [Fatal]
  - Colitis microscopic [Unknown]
  - Therapy non-responder [Unknown]
  - Clostridium test positive [Recovered/Resolved]
